FAERS Safety Report 17885846 (Version 1)
Quarter: 2020Q2

REPORT INFORMATION
  Report Type: Report from Study
  Country: IT (occurrence: IT)
  Receive Date: 20200611
  Receipt Date: 20200611
  Transmission Date: 20200714
  Serious: Yes (Hospitalization)
  Sender: FDA-Public Use
  Company Number: IT-MYLANLABS-2020M1055523

PATIENT
  Age: 87 Year
  Sex: Female

DRUGS (8)
  1. HALCION [Concomitant]
     Active Substance: TRIAZOLAM
     Dosage: UNK
  2. SIMVASTATIN. [Concomitant]
     Active Substance: SIMVASTATIN
     Dosage: UNK
  3. CLOPIDOGREL 1A PHARMA [Concomitant]
     Dosage: UNK
  4. PAROXETINE. [Suspect]
     Active Substance: PAROXETINE
     Indication: PSYCHOTIC DISORDER
     Dosage: 1 DOSAGE FORM, QD
     Dates: start: 20200101, end: 20200514
  5. SEROQUEL [Suspect]
     Active Substance: QUETIAPINE FUMARATE
     Indication: PSYCHOTIC DISORDER
     Dosage: 1 DOSAGE FORM, QD
     Dates: start: 20200101, end: 20200514
  6. EN [Suspect]
     Active Substance: DELORAZEPAM
     Indication: PSYCHOTIC DISORDER
     Dosage: 3 GTT DROPS, QD
     Route: 048
     Dates: start: 20200101, end: 20200514
  7. TRITTICO [Suspect]
     Active Substance: TRAZODONE HYDROCHLORIDE
     Indication: PSYCHOTIC DISORDER
     Dosage: 20 GTT DROPS, QD
     Route: 048
     Dates: start: 20200101, end: 20200514
  8. PLAUNAZIDE [Concomitant]
     Active Substance: HYDROCHLOROTHIAZIDE\OLMESARTAN MEDOXOMIL
     Dosage: UNK

REACTIONS (2)
  - Intestinal obstruction [Unknown]
  - Faecaloma [Unknown]

NARRATIVE: CASE EVENT DATE: 20200514
